FAERS Safety Report 11012566 (Version 1)
Quarter: 2015Q2

REPORT INFORMATION
  Report Type: Spontaneous
  Country: US (occurrence: None)
  Receive Date: 20150410
  Receipt Date: 20150410
  Transmission Date: 20150821
  Serious: Yes (Disabling)
  Sender: FDA-Public Use
  Company Number: None

PATIENT
  Age: 37 Year
  Sex: Male
  Weight: 104.33 kg

DRUGS (6)
  1. RIFAXIMIN [Concomitant]
     Active Substance: RIFAXIMIN
  2. DEXILANT [Suspect]
     Active Substance: DEXLANSOPRAZOLE
     Indication: GASTROOESOPHAGEAL REFLUX DISEASE
     Dosage: TAKEN BY MOUTH
     Dates: start: 20150304, end: 20150325
  3. PROBIOTIC [Concomitant]
     Active Substance: PROBIOTICS NOS
  4. LIBRAX [Concomitant]
     Active Substance: CHLORDIAZEPOXIDE HYDROCHLORIDE\CLIDINIUM BROMIDE
  5. MULTIVITAMIN [Concomitant]
     Active Substance: VITAMINS
  6. FLAYL [Concomitant]

REACTIONS (5)
  - Abdominal pain [None]
  - Clostridium difficile colitis [None]
  - Proctalgia [None]
  - Muscle spasms [None]
  - Diarrhoea [None]

NARRATIVE: CASE EVENT DATE: 20150325
